FAERS Safety Report 26152409 (Version 2)
Quarter: 2025Q4

REPORT INFORMATION
  Report Type: Spontaneous
  Country: EU (occurrence: EU)
  Receive Date: 20251214
  Receipt Date: 20251229
  Transmission Date: 20260117
  Serious: Yes (Other)
  Sender: MERCK SHARP & DOHME LLC
  Company Number: None

PATIENT
  Age: 69 Year
  Sex: Male
  Weight: 69 kg

DRUGS (8)
  1. WINREVAIR [Suspect]
     Active Substance: SOTATERCEPT-CSRK
     Indication: Pulmonary hypertension
     Dosage: 0.7 MG/KG EVERY 3 WEEKS
     Route: 058
     Dates: start: 20250331, end: 20250625
  2. WINREVAIR [Suspect]
     Active Substance: SOTATERCEPT-CSRK
  3. WINREVAIR [Suspect]
     Active Substance: SOTATERCEPT-CSRK
  4. WINREVAIR [Suspect]
     Active Substance: SOTATERCEPT-CSRK
  5. BOSENTAN [Concomitant]
     Active Substance: BOSENTAN
  6. KARDEGIC [Suspect]
     Active Substance: ASPIRIN DL-LYSINE
     Indication: Thrombosis prophylaxis
     Dosage: 1/J
     Route: 048
  7. UPTRAVI [Concomitant]
     Active Substance: SELEXIPAG
  8. ADCIRCA 20 MG, FILM-COATED TABLET [Concomitant]

REACTIONS (2)
  - Gastritis [Recovered/Resolved]
  - Microcytosis [Recovered/Resolved]

NARRATIVE: CASE EVENT DATE: 20250701
